FAERS Safety Report 9164927 (Version 1)
Quarter: 2013Q1

REPORT INFORMATION
  Report Type: Spontaneous
  Country: US (occurrence: None)
  Receive Date: 20130226
  Receipt Date: 20130226
  Transmission Date: 20140127
  Serious: Yes (Life-Threatening, Hospitalization, Other)
  Sender: FDA-Public Use
  Company Number: 2013P1002207

PATIENT
  Age: 70 Year
  Sex: Female

DRUGS (4)
  1. PHENTERMINE [Suspect]
  2. METFORMIN (CON.) [Concomitant]
  3. OMEPRAZOLE (CON.) [Concomitant]
  4. CALCIUM PLUS VITAMIN D (CON.) [Suspect]

REACTIONS (7)
  - Loss of consciousness [None]
  - Ventricular fibrillation [None]
  - Sinus bradycardia [None]
  - Electrocardiogram ST segment elevation [None]
  - Mitral valve incompetence [None]
  - Arteriospasm coronary [None]
  - Troponin I increased [None]
